FAERS Safety Report 12266345 (Version 1)
Quarter: 2016Q2

REPORT INFORMATION
  Report Type: Spontaneous
  Country: IT (occurrence: IT)
  Receive Date: 20160413
  Receipt Date: 20160413
  Transmission Date: 20160815
  Serious: Yes (Other)
  Sender: FDA-Public Use
  Company Number: PHHY2016IT048358

PATIENT
  Age: 55 Year
  Sex: Female
  Weight: 61 kg

DRUGS (4)
  1. FLOUROURACIL [Concomitant]
     Active Substance: FLUOROURACIL
     Dosage: 3900 MG, UNK
     Route: 042
     Dates: start: 20151001, end: 20160303
  2. LEDERFOLIN [Concomitant]
     Active Substance: LEUCOVORIN CALCIUM
     Indication: PRODUCT USED FOR UNKNOWN INDICATION
     Dosage: 320 MG, UNK
     Route: 042
     Dates: start: 20151001, end: 20160303
  3. OXALIPLATIN. [Suspect]
     Active Substance: OXALIPLATIN
     Indication: ADENOCARCINOMA OF COLON
     Dosage: 110 MG, CYCLIC
     Route: 042
     Dates: start: 20151001, end: 20160303
  4. FLOUROURACIL [Concomitant]
     Active Substance: FLUOROURACIL
     Indication: PRODUCT USED FOR UNKNOWN INDICATION
     Dosage: 650 MG, UNK
     Route: 040
     Dates: start: 20151001, end: 20160303

REACTIONS (3)
  - Infusion related reaction [Recovered/Resolved]
  - Abdominal pain upper [Recovered/Resolved]
  - Flushing [Recovered/Resolved]

NARRATIVE: CASE EVENT DATE: 20160121
